FAERS Safety Report 4534245-7 (Version None)
Quarter: 2004Q4

REPORT INFORMATION
  Report Type: 
  Country: None (occurrence: None)
  Receive Date: 20041222
  Receipt Date: 20041213
  Transmission Date: 20050328
  Serious: Yes (Death, Hospitalization)
  Sender: FDA-Public Use
  Company Number: CN-BRISTOL-MYERS SQUIBB COMPANY-12797056

PATIENT
  Age: 71 Year
  Sex: Male

DRUGS (3)
  1. MEVALOTIN [Suspect]
     Indication: HYPERLIPIDAEMIA
     Route: 048
  2. ASPIRIN [Concomitant]
     Indication: HYPERLIPIDAEMIA
  3. PLAVIX [Concomitant]
     Indication: HYPERLIPIDAEMIA

REACTIONS (3)
  - RASH [None]
  - RENAL FAILURE [None]
  - VASCULITIS [None]
